FAERS Safety Report 4443282-2 (Version None)
Quarter: 2004Q3

REPORT INFORMATION
  Report Type: 
  Country: None (occurrence: None)
  Receive Date: 20040907
  Receipt Date: 20040907
  Transmission Date: 20050211
  Serious: Yes (Death, Hospitalization)
  Sender: FDA-Public Use
  Company Number: None

PATIENT
  Sex: Female

DRUGS (6)
  1. CARBOPLATIN [Suspect]
     Indication: LUNG CANCER METASTATIC
  2. GEMCITABINE [Suspect]
     Indication: LUNG CANCER METASTATIC
  3. SPIRONALACTONE [Concomitant]
  4. HYDROCHLOROTHIAZIDE [Concomitant]
  5. PROTONIX [Concomitant]
  6. LASIX [Concomitant]

REACTIONS (2)
  - ERYTHEMA MULTIFORME [None]
  - TOXIC EPIDERMAL NECROLYSIS [None]
